FAERS Safety Report 12920297 (Version 1)
Quarter: 2016Q4

REPORT INFORMATION
  Report Type: Spontaneous
  Country: US (occurrence: US)
  Receive Date: 20161105
  Receipt Date: 20161105
  Transmission Date: 20170207
  Serious: No
  Sender: FDA-Public Use
  Company Number: None

PATIENT
  Age: 61 Year
  Sex: Female
  Weight: 65.25 kg

DRUGS (2)
  1. PROPOFOL. [Suspect]
     Active Substance: PROPOFOL
     Indication: COLONOSCOPY
     Dosage: ?          QUANTITY:260 INJECTION(S);OTHER FREQUENCY:ONE TIME INFUSION;?
     Route: 042
  2. USANA SUPPLEMENTS [Concomitant]

REACTIONS (3)
  - Flatulence [None]
  - Toothache [None]
  - Pain in jaw [None]

NARRATIVE: CASE EVENT DATE: 20161104
